FAERS Safety Report 24325021 (Version 1)
Quarter: 2024Q3

REPORT INFORMATION
  Report Type: Spontaneous
  Country: SE (occurrence: SE)
  Receive Date: 20240916
  Receipt Date: 20240916
  Transmission Date: 20241017
  Serious: Yes (Death, Other)
  Sender: ABBVIE
  Company Number: SE-ABBVIE-5925553

PATIENT
  Sex: Female

DRUGS (1)
  1. RINVOQ [Suspect]
     Active Substance: UPADACITINIB
     Indication: Crohn^s disease
     Route: 048

REACTIONS (1)
  - Pulmonary embolism [Fatal]
